FAERS Safety Report 22972995 (Version 6)
Quarter: 2024Q3

REPORT INFORMATION
  Report Type: Report from Study
  Country: AR (occurrence: AR)
  Receive Date: 20230922
  Receipt Date: 20240828
  Transmission Date: 20241017
  Serious: Yes (Other)
  Sender: JOHNSON AND JOHNSON
  Company Number: AR-JNJFOC-20221153310

PATIENT
  Age: 74 Year
  Sex: Female
  Weight: 45 kg

DRUGS (1)
  1. SIMPONI [Suspect]
     Active Substance: GOLIMUMAB
     Indication: Rheumatoid arthritis
     Route: 058
     Dates: start: 20200622

REACTIONS (6)
  - Sjogren^s syndrome [Recovering/Resolving]
  - Osteonecrosis [Recovering/Resolving]
  - Rheumatoid arthritis [Recovering/Resolving]
  - Influenza [Recovering/Resolving]
  - Meniscus injury [Unknown]
  - Muscle contracture [Not Recovered/Not Resolved]

NARRATIVE: CASE EVENT DATE: 20210101
